FAERS Safety Report 11398562 (Version 1)
Quarter: 2015Q3

REPORT INFORMATION
  Report Type: Spontaneous
  Country: US (occurrence: US)
  Receive Date: 20150820
  Receipt Date: 20150820
  Transmission Date: 20151125
  Serious: No
  Sender: FDA-Public Use
  Company Number: US-009507513-1508USA006569

PATIENT
  Age: 70 Year
  Sex: Female

DRUGS (2)
  1. EMEND [Suspect]
     Active Substance: APREPITANT
     Dosage: 125 MG (DAY 1)
     Route: 048
  2. EMEND [Suspect]
     Active Substance: APREPITANT
     Dosage: 80 MG, (DAY  2 AND 3)
     Route: 048

REACTIONS (1)
  - Adverse event [Not Recovered/Not Resolved]

NARRATIVE: CASE EVENT DATE: 201203
